FAERS Safety Report 5703293-3 (Version None)
Quarter: 2008Q2

REPORT INFORMATION
  Report Type: 
  Country: None (occurrence: None)
  Receive Date: 20080411
  Receipt Date: 20080401
  Transmission Date: 20081010
  Serious: Yes (Other)
  Sender: FDA-Public Use
  Company Number: US-PFIZER INC-2008018937

PATIENT
  Sex: Male
  Weight: 70.3 kg

DRUGS (5)
  1. CHANTIX [Suspect]
     Indication: SMOKING CESSATION THERAPY
  2. VIRAMUNE [Concomitant]
     Indication: HIV INFECTION
  3. COMBIVIR [Concomitant]
     Indication: HIV INFECTION
  4. ASPIRIN [Concomitant]
  5. TYLENOL (CAPLET) [Concomitant]

REACTIONS (5)
  - ANXIETY [None]
  - DEPRESSION [None]
  - MOOD ALTERED [None]
  - NERVOUSNESS [None]
  - PARANOIA [None]
